FAERS Safety Report 8013140-5 (Version None)
Quarter: 2011Q4

REPORT INFORMATION
  Report Type: 
  Country: None (occurrence: None)
  Receive Date: 20111229
  Receipt Date: 20111227
  Transmission Date: 20120403
  Serious: Yes (Hospitalization)
  Sender: FDA-Public Use
  Company Number: PHHY2011SV112673

PATIENT
  Age: 55 Year
  Sex: Female

DRUGS (4)
  1. ANTIBIOTICS [Concomitant]
     Dosage: UNK UKN, UNK
  2. RANITIDINE HCL [Concomitant]
     Dosage: UNK UKN, UNK
  3. GENTEAL [Suspect]
     Indication: DRY EYE
     Dosage: UNK UKN, UNK
     Route: 047
  4. INSULIN [Concomitant]
     Dosage: UNK UKN, UNK

REACTIONS (2)
  - GASTRIC ULCER [None]
  - VOMITING [None]
